FAERS Safety Report 6524734-8 (Version None)
Quarter: 2010Q1

REPORT INFORMATION
  Report Type: 
  Country: None (occurrence: None)
  Receive Date: 20100104
  Receipt Date: 20091229
  Transmission Date: 20100710
  Serious: Yes (Death)
  Sender: FDA-Public Use
  Company Number: CA-BAYER-200943796NA

PATIENT
  Age: 66 Year
  Sex: Female

DRUGS (1)
  1. SORAFENIB [Suspect]
     Indication: CHOROID MELANOMA
     Dosage: TOTAL DAILY DOSE: 400 MG  UNIT DOSE: 200 MG
     Route: 048
     Dates: start: 20090831, end: 20090927

REACTIONS (1)
  - DEATH [None]
